FAERS Safety Report 7987237-X (Version None)
Quarter: 2011Q4

REPORT INFORMATION
  Report Type: 
  Country: None (occurrence: None)
  Receive Date: 20111216
  Receipt Date: 20111212
  Transmission Date: 20120403
  Serious: Yes (Other)
  Sender: FDA-Public Use
  Company Number: US-JNJFOC-20111205289

PATIENT
  Sex: Female

DRUGS (3)
  1. STELARA [Suspect]
     Route: 058
  2. STELARA [Suspect]
     Indication: PSORIASIS
     Route: 058
  3. STELARA [Suspect]
     Dosage: FOR TWO MONTHS
     Route: 058

REACTIONS (5)
  - PSORIASIS [None]
  - MIGRAINE [None]
  - PNEUMONIA [None]
  - MYALGIA [None]
  - DRUG EFFECT DECREASED [None]
